FAERS Safety Report 10356780 (Version 1)
Quarter: 2014Q3

REPORT INFORMATION
  Report Type: Spontaneous
  Country: DE (occurrence: DE)
  Receive Date: 20140801
  Receipt Date: 20140801
  Transmission Date: 20150326
  Serious: Yes (Other)
  Sender: FDA-Public Use
  Company Number: DE-SA-2014SA100062

PATIENT
  Age: 80 Year
  Sex: Female
  Weight: 89 kg

DRUGS (9)
  1. BENZBROMARONE [Concomitant]
     Active Substance: BENZBROMARONE
  2. SOTALOL. [Concomitant]
     Active Substance: SOTALOL
     Indication: ARRHYTHMIA
  3. CLOPIDOGREL BISULFATE. [Suspect]
     Active Substance: CLOPIDOGREL BISULFATE
     Indication: STENT PLACEMENT
     Route: 065
     Dates: start: 20140130
  4. ATORVASTATIN [Suspect]
     Active Substance: ATORVASTATIN
     Indication: LIPID METABOLISM DISORDER
     Route: 065
     Dates: start: 20140703
  5. CARMEN [Concomitant]
     Active Substance: LERCANIDIPINE
     Indication: HYPERTENSION
  6. TORASEMIDE [Concomitant]
     Active Substance: TORSEMIDE
     Indication: OEDEMA PERIPHERAL
  7. METFORMIN [Concomitant]
     Active Substance: METFORMIN HYDROCHLORIDE
     Indication: DIABETES MELLITUS
  8. EUTHYROX [Concomitant]
     Active Substance: LEVOTHYROXINE SODIUM
     Indication: THYROID OPERATION
     Dosage: 88 / 100 ALWAYS 1 TABLET IN ROTATION
  9. MARCUMAR [Concomitant]
     Active Substance: PHENPROCOUMON

REACTIONS (6)
  - Intestinal obstruction [Unknown]
  - Asthenia [Unknown]
  - Decreased appetite [Unknown]
  - Abnormal loss of weight [Unknown]
  - Blood glucose increased [Unknown]
  - Myalgia [Unknown]

NARRATIVE: CASE EVENT DATE: 20140705
